FAERS Safety Report 13345721 (Version 1)
Quarter: 2017Q1

REPORT INFORMATION
  Report Type: Spontaneous
  Country: None (occurrence: US)
  Receive Date: 20170316
  Receipt Date: 20170316
  Transmission Date: 20170428
  Serious: Yes (Life-Threatening, Hospitalization)
  Sender: FDA-Public Use
  Company Number: None

PATIENT
  Age: 72 Year
  Sex: Female
  Weight: 65.8 kg

DRUGS (8)
  1. SPIRINOLACTONE [Concomitant]
  2. MK-3475 [Suspect]
     Active Substance: PEMBROLIZUMAB
     Indication: OVARIAN CANCER
     Route: 042
     Dates: start: 20170111, end: 20170303
  3. LOSARTAN. [Concomitant]
     Active Substance: LOSARTAN
  4. METOPROLOL. [Concomitant]
     Active Substance: METOPROLOL
  5. NEURONTIN [Concomitant]
     Active Substance: GABAPENTIN
  6. CLONIDINE. [Concomitant]
     Active Substance: CLONIDINE
  7. INSULIN [Concomitant]
     Active Substance: INSULIN NOS
  8. NEXIUM [Concomitant]
     Active Substance: ESOMEPRAZOLE MAGNESIUM

REACTIONS (18)
  - Atrial fibrillation [None]
  - Supraventricular tachycardia [None]
  - Cardiomyopathy [None]
  - Fluid overload [None]
  - Tachycardia [None]
  - Chest pain [None]
  - Respiratory failure [None]
  - Urine leukocyte esterase positive [None]
  - Infusion related reaction [None]
  - Cardiac failure congestive [None]
  - Dizziness [None]
  - Hypomagnesaemia [None]
  - Pneumonitis [None]
  - Neuropathy peripheral [None]
  - Sinusitis [None]
  - Vulvovaginal candidiasis [None]
  - Chills [None]
  - Pleural effusion [None]

NARRATIVE: CASE EVENT DATE: 20170310
